FAERS Safety Report 5985848-4 (Version None)
Quarter: 2008Q4

REPORT INFORMATION
  Report Type: 
  Country: None (occurrence: None)
  Receive Date: 20081209
  Receipt Date: 20080402
  Transmission Date: 20090506
  Serious: No
  Sender: FDA-Public Use
  Company Number: US-AMGEN-KDL271882

PATIENT
  Sex: Female

DRUGS (2)
  1. ENBREL [Suspect]
     Indication: PSORIASIS
     Route: 058
     Dates: start: 20040511
  2. METFORMIN HCL [Concomitant]

REACTIONS (5)
  - BLOOD GLUCOSE INCREASED [None]
  - FATIGUE [None]
  - HEPATIC ENZYME INCREASED [None]
  - PAIN [None]
  - PAIN OF SKIN [None]
